FAERS Safety Report 13180215 (Version 1)
Quarter: 2017Q1

REPORT INFORMATION
  Report Type: Spontaneous
  Country: US (occurrence: US)
  Receive Date: 20170202
  Receipt Date: 20170202
  Transmission Date: 20170428
  Serious: No
  Sender: FDA-Public Use
  Company Number: US-ALLERGAN-1000087174

PATIENT
  Age: 93 Year
  Sex: Female
  Weight: 68.93 kg

DRUGS (3)
  1. MONUROL [Suspect]
     Active Substance: FOSFOMYCIN TROMETHAMINE
     Indication: URINARY TRACT INFECTION
     Dosage: 1 DF, UNK
     Route: 065
     Dates: start: 201605
  2. MONUROL [Suspect]
     Active Substance: FOSFOMYCIN TROMETHAMINE
     Indication: SINUSITIS
  3. COUMADIN [Concomitant]
     Active Substance: WARFARIN SODIUM
     Indication: PRODUCT USED FOR UNKNOWN INDICATION
     Dosage: 7.5 MG, UNK
     Route: 048

REACTIONS (11)
  - Off label use [Unknown]
  - Pelvic pain [Recovered/Resolved]
  - Skin atrophy [Not Recovered/Not Resolved]
  - Feeling abnormal [Unknown]
  - Dysuria [Recovered/Resolved]
  - Localised infection [Not Recovered/Not Resolved]
  - Pain [Unknown]
  - Muscle spasms [Recovered/Resolved]
  - Drug ineffective [Unknown]
  - Skin graft [Unknown]
  - Urine output increased [Recovered/Resolved]

NARRATIVE: CASE EVENT DATE: 201605
